FAERS Safety Report 7782637-5 (Version None)
Quarter: 2011Q3

REPORT INFORMATION
  Report Type: 
  Country: None (occurrence: None)
  Receive Date: 20110928
  Receipt Date: 20110920
  Transmission Date: 20111222
  Serious: Yes (Hospitalization, Other)
  Sender: FDA-Public Use
  Company Number: US-AMGEN-USASP2011044296

PATIENT
  Age: 50 Year
  Sex: Male

DRUGS (2)
  1. XGEVA [Suspect]
     Indication: RENAL CELL CARCINOMA
     Dates: start: 20110801
  2. EVEROLIMUS [Concomitant]

REACTIONS (2)
  - RENAL FAILURE ACUTE [None]
  - DRUG INTERACTION [None]
